FAERS Safety Report 9918514 (Version 3)
Quarter: 2014Q1

REPORT INFORMATION
  Report Type: Spontaneous
  Country: US (occurrence: US)
  Receive Date: 20140224
  Receipt Date: 20140326
  Transmission Date: 20141002
  Serious: No
  Sender: FDA-Public Use
  Company Number: US-BIOGENIDEC-2014BI014785

PATIENT
  Age: 65 Year
  Sex: Male

DRUGS (9)
  1. TECFIDERA [Suspect]
     Indication: MULTIPLE SCLEROSIS
     Route: 048
     Dates: start: 20131126
  2. AVONEX [Concomitant]
     Indication: MULTIPLE SCLEROSIS
     Route: 030
  3. BUPROPION HCL ER (XL) [Concomitant]
  4. FLUOXETINE HCL [Concomitant]
  5. GEMFIBROZIL [Concomitant]
  6. LUMIGAN [Concomitant]
  7. OMEPRAZOLE [Concomitant]
  8. TIZANIDINE HCL [Concomitant]
  9. TRIAMTERENE-HCTZ [Concomitant]

REACTIONS (6)
  - Headache [Unknown]
  - Pain [Not Recovered/Not Resolved]
  - Hot flush [Not Recovered/Not Resolved]
  - Nausea [Not Recovered/Not Resolved]
  - Vomiting [Recovered/Resolved]
  - Diarrhoea [Recovered/Resolved]
